FAERS Safety Report 7385840-1 (Version None)
Quarter: 2011Q1

REPORT INFORMATION
  Report Type: 
  Country: None (occurrence: None)
  Receive Date: 20110331
  Receipt Date: 20110328
  Transmission Date: 20110831
  Serious: No
  Sender: FDA-Public Use
  Company Number: US-PFIZER INC-2011069313

PATIENT
  Sex: Female
  Weight: 86.1 kg

DRUGS (1)
  1. ADVIL CONGESTION RELIEF [Suspect]
     Indication: PULMONARY CONGESTION
     Dosage: 10 MG, EVERY 4 HRS
     Route: 048
     Dates: start: 20110306, end: 20110308

REACTIONS (2)
  - DYSPNOEA [None]
  - DRUG INEFFECTIVE [None]
